FAERS Safety Report 9953593 (Version 2)
Quarter: 2014Q1

REPORT INFORMATION
  Report Type: Report from Study
  Country: US (occurrence: US)
  Receive Date: 20140304
  Receipt Date: 20140304
  Transmission Date: 20141002
  Serious: Yes (Hospitalization, Other)
  Sender: FDA-Public Use
  Company Number: US-ABBVIE-13P-163-1036508-00

PATIENT
  Age: 63 Year
  Sex: Female

DRUGS (6)
  1. HUMIRA [Suspect]
     Indication: CROHN^S DISEASE
     Dates: start: 2008, end: 201210
  2. COUMADIN [Concomitant]
     Indication: THROMBOSIS
  3. LEVOTHYROXINE [Concomitant]
     Indication: HYPOTHYROIDISM
  4. IRON [Concomitant]
     Indication: ANAEMIA
  5. VITAMIN D3 [Concomitant]
     Indication: PRODUCT USED FOR UNKNOWN INDICATION
  6. VITAMIN C [Concomitant]
     Indication: IMMUNE SYSTEM DISORDER

REACTIONS (9)
  - Groin abscess [Unknown]
  - Abscess limb [Unknown]
  - Groin abscess [Unknown]
  - Groin abscess [Not Recovered/Not Resolved]
  - Fungal infection [Recovering/Resolving]
  - Alopecia [Not Recovered/Not Resolved]
  - Chronic obstructive pulmonary disease [Not Recovered/Not Resolved]
  - Asthma [Not Recovered/Not Resolved]
  - Fungal infection [Not Recovered/Not Resolved]
